FAERS Safety Report 13074678 (Version 1)
Quarter: 2016Q4

REPORT INFORMATION
  Report Type: Spontaneous
  Country: US (occurrence: US)
  Receive Date: 20161230
  Receipt Date: 20161230
  Transmission Date: 20170207
  Serious: No
  Sender: FDA-Public Use
  Company Number: US-TEVA-648948USA

PATIENT
  Age: 72 Year
  Sex: Female
  Weight: 72.64 kg

DRUGS (2)
  1. TRAZODONE [Suspect]
     Active Substance: TRAZODONE HYDROCHLORIDE
     Indication: INSOMNIA
     Route: 065
     Dates: start: 201601
  2. TRAZODONE [Suspect]
     Active Substance: TRAZODONE HYDROCHLORIDE
     Indication: NIGHTMARE

REACTIONS (4)
  - Sleep disorder [Unknown]
  - Intentional product use issue [Unknown]
  - Nasal congestion [Unknown]
  - Oxygen consumption decreased [Unknown]

NARRATIVE: CASE EVENT DATE: 201601
